FAERS Safety Report 15574309 (Version 2)
Quarter: 2019Q2

REPORT INFORMATION
  Report Type: Spontaneous
  Country: US (occurrence: US)
  Receive Date: 20181101
  Receipt Date: 20190401
  Transmission Date: 20190711
  Serious: No
  Sender: FDA-Public Use
  Company Number: US-SA-2018SA300056

PATIENT
  Age: 26 Year
  Sex: Male

DRUGS (4)
  1. HYDROXYZINE [Concomitant]
     Active Substance: HYDROXYZINE HYDROCHLORIDE
     Indication: PRURITUS
     Dosage: 25 MG, 1-2 QHS PRN
     Route: 048
     Dates: start: 20180911, end: 201809
  2. DUPIXENT [Suspect]
     Active Substance: DUPILUMAB
     Dosage: 300 MG, QOW
     Dates: start: 201804
  3. CLOBETASOL [Concomitant]
     Active Substance: CLOBETASOL
     Indication: ECZEMA
     Dosage: UNK UNK, BID
     Route: 061
     Dates: start: 20180911, end: 201809
  4. ZONALON [Concomitant]
     Active Substance: DOXEPIN HYDROCHLORIDE
     Indication: NEURODERMATITIS
     Dosage: UNK UNK, Q8H
     Route: 061
     Dates: start: 20180911

REACTIONS (1)
  - Dermatitis [Recovering/Resolving]
